FAERS Safety Report 25413434 (Version 1)
Quarter: 2025Q2

REPORT INFORMATION
  Report Type: Spontaneous
  Country: US (occurrence: US)
  Receive Date: 20250609
  Receipt Date: 20250609
  Transmission Date: 20250717
  Serious: No
  Sender: AMGEN
  Company Number: US-AMGEN-USASP2025108667

PATIENT
  Age: 62 Year
  Sex: Female

DRUGS (1)
  1. TEPEZZA [Suspect]
     Active Substance: TEPROTUMUMAB-TRBW
     Indication: Product used for unknown indication
     Route: 065
     Dates: end: 202503

REACTIONS (12)
  - Cardiac disorder [Unknown]
  - Feeling abnormal [Unknown]
  - Therapeutic product effect incomplete [Unknown]
  - Ear disorder [Unknown]
  - Tinnitus [Unknown]
  - Vision blurred [Unknown]
  - Depression [Unknown]
  - Amnesia [Unknown]
  - Diplopia [Unknown]
  - Eye disorder [Unknown]
  - Muscle tightness [Unknown]
  - Dyspnoea [Unknown]
